FAERS Safety Report 9739636 (Version 2)
Quarter: 2013Q4

REPORT INFORMATION
  Report Type: Spontaneous
  Country: US (occurrence: US)
  Receive Date: 20131209
  Receipt Date: 20131209
  Transmission Date: 20140711
  Serious: No
  Sender: FDA-Public Use
  Company Number: US-ASTELLAS-2013US009543

PATIENT
  Age: 78 Year
  Sex: Male
  Weight: 62 kg

DRUGS (23)
  1. XTANDI [Suspect]
     Indication: PROSTATE CANCER
     Dosage: 160 MG, UID/QD
     Route: 048
     Dates: start: 20121106, end: 20130106
  2. XTANDI [Suspect]
     Dosage: 160 MG, UID/QD
     Route: 048
     Dates: start: 20130417, end: 201308
  3. DENOSUMAB [Concomitant]
     Indication: BONE DISORDER
     Dosage: UNK
     Route: 065
     Dates: start: 20110801
  4. VALACYCLOVIR HYDROCHLORIDE [Concomitant]
     Indication: HERPES ZOSTER
     Dosage: 500 MG, UID/QD
     Route: 048
  5. OMEPRAZOLE [Concomitant]
     Indication: PRODUCT USED FOR UNKNOWN INDICATION
     Dosage: 20 MG, UID/QD
     Route: 048
  6. PRAVASTATIN [Concomitant]
     Indication: PRODUCT USED FOR UNKNOWN INDICATION
     Dosage: 40 MG, QHS
     Route: 048
  7. VENLAFAXINE [Concomitant]
     Indication: HOT FLUSH
     Dosage: 75 MG, UID/QD
     Route: 048
  8. HYDROCHLOROTHIAZIDE [Concomitant]
     Indication: PRODUCT USED FOR UNKNOWN INDICATION
     Dosage: UNK
     Route: 065
  9. CALCIUM 600 PLUS VITAMIN D3 [Concomitant]
     Indication: HYPOVITAMINOSIS
     Dosage: 1200 MG, UID/QD
     Route: 048
  10. ASA [Concomitant]
     Indication: PRODUCT USED FOR UNKNOWN INDICATION
     Dosage: 81 MG, UID/QD
     Route: 048
  11. NAPROXEN [Concomitant]
     Indication: PRODUCT USED FOR UNKNOWN INDICATION
     Dosage: 250 MG, BID
     Route: 048
  12. XGEVA [Concomitant]
     Indication: PROSTATE CANCER
     Dosage: 120 MG, MONTHLY
     Route: 058
     Dates: start: 20110801
  13. ABIRATERONE [Concomitant]
     Indication: PRODUCT USED FOR UNKNOWN INDICATION
     Dosage: 1000 MG, UID/QD
     Route: 048
  14. ALBUTEROL                          /00139501/ [Concomitant]
     Indication: CHRONIC OBSTRUCTIVE PULMONARY DISEASE
     Dosage: 5 MG, PRN
     Route: 055
  15. MOTRIN [Concomitant]
     Indication: PRODUCT USED FOR UNKNOWN INDICATION
     Dosage: 200 MG, Q6 HOURS AS NEEDED
     Route: 048
  16. MEGACE [Concomitant]
     Indication: DECREASED APPETITE
     Dosage: 20 ML, UID/QD
     Route: 048
  17. DELTASONE                          /00044701/ [Concomitant]
     Indication: PRODUCT USED FOR UNKNOWN INDICATION
     Dosage: 5 MG, BID
     Route: 048
     Dates: start: 20120220
  18. COMPAZINE                          /00013302/ [Concomitant]
     Indication: PRODUCT USED FOR UNKNOWN INDICATION
     Dosage: 10 MG, Q6 HOURS AS NEEDED
     Route: 048
  19. TYLENOL                            /00020001/ [Concomitant]
     Indication: PRODUCT USED FOR UNKNOWN INDICATION
     Dosage: 1000 MG, Q6 HOURS AS NEEDED
     Route: 048
  20. BENADRYL                           /00000402/ [Concomitant]
     Indication: PRURITUS
     Dosage: 50 MG, PRN
     Route: 048
  21. LIDEX [Concomitant]
     Indication: PRURITUS
     Dosage: UNK
     Route: 061
  22. ROXICET [Concomitant]
     Indication: PAIN
     Dosage: 325 MG, PRN
     Route: 048
  23. ELIGARD [Concomitant]
     Indication: PROSTATE CANCER
     Dosage: UNK
     Route: 065
     Dates: end: 20130701

REACTIONS (15)
  - Drug ineffective [Unknown]
  - Nausea [Recovering/Resolving]
  - Weight decreased [Unknown]
  - Decreased appetite [Not Recovered/Not Resolved]
  - Respiratory tract congestion [Recovering/Resolving]
  - Chest discomfort [Unknown]
  - Constipation [Unknown]
  - Herpes zoster [Unknown]
  - Hypovitaminosis [Unknown]
  - Anaemia [Unknown]
  - Nightmare [Recovered/Resolved]
  - Headache [Recovered/Resolved]
  - Asthenia [Not Recovered/Not Resolved]
  - Mental impairment [Recovered/Resolved]
  - Chronic obstructive pulmonary disease [Unknown]
